FAERS Safety Report 4459345-1 (Version None)
Quarter: 2004Q3

REPORT INFORMATION
  Report Type: 
  Country: None (occurrence: None)
  Receive Date: 20040927
  Receipt Date: 20040922
  Transmission Date: 20050211
  Serious: Yes (Other)
  Sender: FDA-Public Use
  Company Number: ES-MERCK-0409ESP00026

PATIENT
  Age: 23 Month
  Weight: 11 kg

DRUGS (1)
  1. SINGULAIR [Suspect]
     Indication: BRONCHITIS ACUTE
     Route: 048
     Dates: start: 20040325, end: 20040501

REACTIONS (2)
  - INSOMNIA [None]
  - NERVOUSNESS [None]
